FAERS Safety Report 9504493 (Version 1)
Quarter: 2013Q3

REPORT INFORMATION
  Report Type: Spontaneous
  Country: US (occurrence: US)
  Receive Date: 20130906
  Receipt Date: 20130906
  Transmission Date: 20140515
  Serious: Yes (Other)
  Sender: FDA-Public Use
  Company Number: US-ABBOTT-13P-163-1140979-00

PATIENT
  Sex: Male

DRUGS (2)
  1. HUMIRA [Suspect]
     Indication: FOETAL EXPOSURE DURING PREGNANCY
     Route: 050
  2. HUMIRA [Suspect]
     Indication: EXPOSURE VIA BODY FLUID
     Route: 064

REACTIONS (6)
  - Meniscus injury [Unknown]
  - Meniscus injury [Unknown]
  - Joint swelling [Unknown]
  - Stress [Unknown]
  - Rheumatoid factor increased [Unknown]
  - Drug ineffective [Unknown]
